FAERS Safety Report 5458088-5 (Version None)
Quarter: 2007Q3

REPORT INFORMATION
  Report Type: 
  Country: None (occurrence: None)
  Receive Date: 20070919
  Receipt Date: 20070910
  Transmission Date: 20080115
  Serious: Yes (Other)
  Sender: FDA-Public Use
  Company Number: GB-JNJFOC-20070902614

PATIENT
  Weight: 2.2 kg

DRUGS (7)
  1. CAELYX [Suspect]
     Indication: DRUG EXPOSURE DURING PREGNANCY
     Route: 015
  2. CYCLOPHOSPHAMIDE [Suspect]
     Indication: DRUG EXPOSURE DURING PREGNANCY
     Route: 015
  3. CHLORHEXIDINE GLUCONATE [Concomitant]
     Indication: DRUG EXPOSURE DURING PREGNANCY
     Route: 015
  4. METOCLOPRAMIDE [Concomitant]
     Indication: DRUG EXPOSURE DURING PREGNANCY
     Route: 015
  5. MOVICOL [Concomitant]
     Indication: DRUG EXPOSURE DURING PREGNANCY
     Route: 015
  6. ONDANSETRON [Concomitant]
     Indication: DRUG EXPOSURE DURING PREGNANCY
     Route: 015
  7. SENNA [Concomitant]
     Indication: DRUG EXPOSURE DURING PREGNANCY
     Route: 015

REACTIONS (2)
  - DRUG EXPOSURE DURING PREGNANCY [None]
  - PREMATURE BABY [None]
